FAERS Safety Report 7187346-1 (Version None)
Quarter: 2010Q4

REPORT INFORMATION
  Report Type: 
  Country: None (occurrence: None)
  Receive Date: 20101222
  Receipt Date: 20101210
  Transmission Date: 20110411
  Serious: No
  Sender: FDA-Public Use
  Company Number: US-ELI_LILLY_AND_COMPANY-US201012003406

PATIENT
  Age: 45 Year
  Sex: Female

DRUGS (4)
  1. CYMBALTA [Suspect]
     Dosage: 30 MG, UNK
     Dates: start: 20100301, end: 20100401
  2. PERCOCET [Concomitant]
  3. NEURONTIN [Concomitant]
  4. XANAX [Concomitant]

REACTIONS (1)
  - LIVER FUNCTION TEST ABNORMAL [None]
